FAERS Safety Report 12925377 (Version 3)
Quarter: 2017Q2

REPORT INFORMATION
  Report Type: Spontaneous
  Country: US (occurrence: US)
  Receive Date: 20161108
  Receipt Date: 20170503
  Transmission Date: 20170830
  Serious: No
  Sender: FDA-Public Use
  Company Number: US-SA-2016SA151913

PATIENT
  Age: 68 Year
  Sex: Female

DRUGS (15)
  1. CARVEDILOL. [Concomitant]
     Active Substance: CARVEDILOL
  2. FLUCONAZOLE. [Concomitant]
     Active Substance: FLUCONAZOLE
  3. MUPIROCIN. [Concomitant]
     Active Substance: MUPIROCIN
     Dosage: 2%
  4. LOSARTAN POTASSIUM. [Concomitant]
     Active Substance: LOSARTAN POTASSIUM
     Dosage: 50 MG STRENGHT
  5. ISOSORBIDE MONONITRATE. [Concomitant]
     Active Substance: ISOSORBIDE MONONITRATE
  6. METRONIDAZOL [Concomitant]
     Active Substance: METRONIDAZOLE
  7. ALIROCUMAB PREFILLED PEN [Concomitant]
     Active Substance: ALIROCUMAB
     Dates: start: 201606
  8. GLIPIZIDE. [Concomitant]
     Active Substance: GLIPIZIDE
  9. LOSARTAN POTASSIUM. [Concomitant]
     Active Substance: LOSARTAN POTASSIUM
     Dosage: 25 MG STRENGHT
  10. METFORMIN [Concomitant]
     Active Substance: METFORMIN HYDROCHLORIDE
  11. ONGLYZA [Concomitant]
     Active Substance: SAXAGLIPTIN HYDROCHLORIDE
  12. PRALUENT [Suspect]
     Active Substance: ALIROCUMAB
     Indication: HYPERLIPIDAEMIA
     Route: 058
     Dates: start: 20160628, end: 201702
  13. GABAPENTIN. [Concomitant]
     Active Substance: GABAPENTIN
  14. DOMEBORO [Concomitant]
     Active Substance: ALUMINUM ACETATE
     Dosage: POWDER PACKETS
  15. BRILINTA [Concomitant]
     Active Substance: TICAGRELOR

REACTIONS (5)
  - Vaginal haemorrhage [Recovering/Resolving]
  - Abdominal pain upper [Unknown]
  - Skin discomfort [Unknown]
  - Abdominal pain upper [Recovering/Resolving]
  - Abdominal distension [Unknown]

NARRATIVE: CASE EVENT DATE: 201606
